FAERS Safety Report 5786689-3 (Version None)
Quarter: 2008Q2

REPORT INFORMATION
  Report Type: 
  Country: None (occurrence: None)
  Receive Date: 20080618
  Receipt Date: 20080613
  Transmission Date: 20081010
  Serious: Yes (Other)
  Sender: FDA-Public Use
  Company Number: 2008SP011711

PATIENT
  Age: 34 Year
  Sex: Male
  Weight: 95 kg

DRUGS (7)
  1. TEMODAL [Suspect]
     Indication: GLIOBLASTOMA MULTIFORME
     Dosage: PO
     Route: 048
     Dates: start: 20080414, end: 20080530
  2. DECADRON [Suspect]
     Indication: DRUG USE FOR UNKNOWN INDICATION
     Dosage: 4 MG; QID;
  3. COUMADIN (CON.) [Concomitant]
  4. DILANTIN (CON.) [Concomitant]
  5. PRISIUM (CON.) [Concomitant]
  6. WELLBUTRIN (CON.) [Concomitant]
  7. RADIATION (CON.) [Concomitant]

REACTIONS (7)
  - CHEST PAIN [None]
  - CHILLS [None]
  - NAUSEA [None]
  - PLEURAL EFFUSION [None]
  - PNEUMONIA [None]
  - PULMONARY EMBOLISM [None]
  - VOMITING [None]
